FAERS Safety Report 5420590-X (Version None)
Quarter: 2007Q3

REPORT INFORMATION
  Report Type: 
  Country: None (occurrence: None)
  Receive Date: 20070718
  Receipt Date: 20060705
  Transmission Date: 20080115
  Serious: Yes (Hospitalization, Other)
  Sender: FDA-Public Use
  Company Number: 2006084476

PATIENT
  Age: 55 Year
  Sex: Male
  Weight: 81.6475 kg

DRUGS (4)
  1. CELEBREX [Suspect]
     Indication: BACK PAIN
     Dosage: (4 IN 1 D)
     Dates: start: 19990101, end: 20030101
  2. CELEBREX [Suspect]
     Indication: MUSCULOSKELETAL PAIN
     Dosage: (4 IN 1 D)
     Dates: start: 19990101, end: 20030101
  3. CELEBREX [Suspect]
     Indication: NECK PAIN
     Dosage: (4 IN 1 D)
     Dates: start: 19990101, end: 20030101
  4. BEXTRA [Suspect]
     Indication: VASCULAR OCCLUSION
     Dosage: (4 IN 1 D)
     Dates: start: 19990101, end: 20030101

REACTIONS (1)
  - CORONARY ARTERY OCCLUSION [None]
